FAERS Safety Report 25734111 (Version 1)
Quarter: 2025Q3

REPORT INFORMATION
  Report Type: Report from Study
  Country: GB (occurrence: GB)
  Receive Date: 20250828
  Receipt Date: 20250828
  Transmission Date: 20251021
  Serious: Yes (Other)
  Sender: SAMSUNG BIOEPIS
  Company Number: GB-SAMSUNG BIOEPIS-SB-2025-20889

PATIENT
  Sex: Male

DRUGS (2)
  1. PYZCHIVA [Suspect]
     Active Substance: USTEKINUMAB-TTWE
     Indication: Psoriasis
     Route: 058
     Dates: start: 20250331
  2. PYZCHIVA [Suspect]
     Active Substance: USTEKINUMAB-TTWE
     Indication: Pityriasis rubra pilaris

REACTIONS (2)
  - Lower respiratory tract infection [Unknown]
  - Off label use [Unknown]
